FAERS Safety Report 25674351 (Version 1)
Quarter: 2025Q3

REPORT INFORMATION
  Report Type: Spontaneous
  Country: GB (occurrence: GB)
  Receive Date: 20250813
  Receipt Date: 20250813
  Transmission Date: 20251020
  Serious: Yes (Hospitalization, Other)
  Sender: ADVANZ PHARMA
  Company Number: GB-Concordia Pharmaceuticals Inc.-GSH201803-001016

PATIENT

DRUGS (3)
  1. PREDNISOLONE [Suspect]
     Active Substance: PREDNISOLONE
     Indication: Rash erythematous
  2. PREDNISOLONE [Suspect]
     Active Substance: PREDNISOLONE
  3. CYCLOSPORINE [Suspect]
     Active Substance: CYCLOSPORINE
     Indication: Rash erythematous

REACTIONS (5)
  - HIV-associated neurocognitive disorder [Recovered/Resolved]
  - CD4 lymphocytes decreased [Recovered/Resolved]
  - Oral candidiasis [Unknown]
  - Toxicity to various agents [Unknown]
  - Therapeutic product effect incomplete [Unknown]
